FAERS Safety Report 18223935 (Version 1)
Quarter: 2020Q3

REPORT INFORMATION
  Report Type: Report from Study
  Country: US (occurrence: US)
  Receive Date: 20200902
  Receipt Date: 20200902
  Transmission Date: 20201103
  Serious: Yes (Hospitalization)
  Sender: FDA-Public Use
  Company Number: US-EISAI MEDICAL RESEARCH-EC-2020-073246

PATIENT
  Age: 36 Year
  Sex: Male
  Weight: 75 kg

DRUGS (8)
  1. NAMENDA [Concomitant]
     Active Substance: MEMANTINE HYDROCHLORIDE
  2. LENVIMA [Suspect]
     Active Substance: LENVATINIB
     Route: 048
     Dates: start: 2020
  3. PROBIOTIC [Concomitant]
     Active Substance: PROBIOTICS NOS
  4. SIMVASTATIN. [Concomitant]
     Active Substance: SIMVASTATIN
  5. DEXAMETHASONE. [Concomitant]
     Active Substance: DEXAMETHASONE
  6. LENVIMA [Suspect]
     Active Substance: LENVATINIB
     Indication: RENAL CANCER
     Route: 048
     Dates: start: 20200402, end: 20200428
  7. AFINITOR [Concomitant]
     Active Substance: EVEROLIMUS
  8. LENVIMA [Suspect]
     Active Substance: LENVATINIB
     Route: 048
     Dates: start: 2020, end: 202007

REACTIONS (7)
  - Blood pressure increased [Unknown]
  - Pancreatitis [Unknown]
  - Gingival pain [Unknown]
  - Oral pain [Unknown]
  - Bone pain [Recovering/Resolving]
  - Epistaxis [Unknown]
  - Arthralgia [Recovering/Resolving]

NARRATIVE: CASE EVENT DATE: 202004
